FAERS Safety Report 25167122 (Version 1)
Quarter: 2025Q2

REPORT INFORMATION
  Report Type: Spontaneous
  Country: US (occurrence: None)
  Receive Date: 20250404
  Receipt Date: 20250404
  Transmission Date: 20250716
  Serious: Yes (Other)
  Sender: FDA-CTU
  Company Number: None

PATIENT
  Age: 17 Year
  Sex: Male
  Weight: 20.25 kg

DRUGS (1)
  1. MIRALAX [Suspect]
     Active Substance: POLYETHYLENE GLYCOL 3350
     Indication: Constipation
     Dosage: FREQUENCY : DAILY;?
     Route: 048
     Dates: end: 20250321

REACTIONS (2)
  - Psychomotor hyperactivity [None]
  - Abnormal behaviour [None]

NARRATIVE: CASE EVENT DATE: 20250316
